FAERS Safety Report 7811921-1 (Version None)
Quarter: 2011Q4

REPORT INFORMATION
  Report Type: 
  Country: None (occurrence: None)
  Receive Date: 20111013
  Receipt Date: 20111007
  Transmission Date: 20120403
  Serious: Yes (Death, Hospitalization)
  Sender: FDA-Public Use
  Company Number: PHHY2011JP84799

PATIENT
  Sex: Male
  Weight: 64 kg

DRUGS (23)
  1. EXELON [Suspect]
     Dosage: 9.0 MG (4.5 MGX2 PATCH DAILY)
     Route: 062
     Dates: start: 20110908, end: 20110908
  2. FAMOTIDINE [Concomitant]
     Dosage: 40 MG, UNK
     Route: 041
     Dates: start: 20110824
  3. POTASSIUM CHLORIDE [Concomitant]
     Indication: PROPHYLAXIS
     Dosage: 20 ML, UNK
     Route: 041
     Dates: start: 20110807, end: 20110823
  4. ATARAX [Concomitant]
     Indication: INSOMNIA
     Dosage: 25 MG, UNK
     Route: 042
     Dates: start: 20110807, end: 20110823
  5. RINGER-ACETAT [Concomitant]
     Indication: RESUSCITATION
     Dosage: 1000 ML, UNK
     Route: 041
  6. DEXTROSE [Concomitant]
     Indication: DEHYDRATION
     Dosage: 500 ML, UNK
     Route: 041
     Dates: start: 20110809
  7. EXELON [Suspect]
     Indication: DEMENTIA ALZHEIMER'S TYPE
     Dosage: 4.5 MG DAILY
     Route: 062
     Dates: start: 20110811, end: 20110907
  8. PREDNISOLONE SODIUM SUCCINATE INJ [Concomitant]
     Indication: POLYARTERITIS NODOSA
     Dosage: 10 MG, UNK
     Route: 041
     Dates: start: 20110807
  9. PREDNISOLONE SODIUM SUCCINATE INJ [Concomitant]
     Dosage: 20 MG, UNK
     Dates: end: 20110823
  10. DEXTROSE [Concomitant]
     Indication: RESUSCITATION
     Dosage: 1000 ML, UNK
     Route: 041
  11. ASPARA K [Concomitant]
     Indication: PROPHYLAXIS
     Dosage: 2700 MG, UNK
     Route: 048
     Dates: start: 20110824
  12. MEDROL [Concomitant]
     Indication: POLYARTERITIS NODOSA
     Dosage: 14 MG, UNK
     Route: 048
     Dates: start: 20110824
  13. TPN ELECTROLYTES IN PLASTIC CONTAINER [Concomitant]
     Indication: APHAGIA
     Dosage: 1000 ML, UNK
     Route: 041
     Dates: start: 20110807, end: 20110823
  14. DEXTROSE [Concomitant]
     Dosage: 500 ML, UNK
     Route: 041
  15. GLUCONSAN K [Concomitant]
     Indication: PROPHYLAXIS
     Dosage: 10 G, UNK
     Route: 048
     Dates: start: 20110824
  16. LENDORMIN [Concomitant]
     Indication: INSOMNIA
     Dosage: 0.125 MG, UNK
     Route: 048
     Dates: start: 20110824
  17. C-PARA [Concomitant]
     Dosage: 2 ML, UNK
     Route: 041
     Dates: start: 20110807, end: 20110823
  18. PREDNISOLONE SODIUM SUCCINATE INJ [Concomitant]
     Dosage: 15 MG, UNK
     Route: 041
  19. FAMOTIDINE [Concomitant]
     Indication: PROPHYLAXIS
     Dosage: 20 MG, UNK
     Route: 041
     Dates: start: 20110807, end: 20110823
  20. RINGER-ACETAT [Concomitant]
     Indication: DEHYDRATION
     Dosage: 500 ML, UNK
     Route: 041
     Dates: start: 20110809
  21. RINGER-ACETAT [Concomitant]
     Dosage: 500 ML, UNK
     Route: 041
  22. ONEALFA [Concomitant]
     Indication: PROPHYLAXIS
     Dosage: 1 UG, UNK
     Route: 048
     Dates: start: 20110824
  23. GLUACETO 35 [Concomitant]
     Indication: APHAGIA
     Dosage: 500 ML, UNK
     Route: 041
     Dates: start: 20110807, end: 20110823

REACTIONS (13)
  - CHOKING [None]
  - ASPARTATE AMINOTRANSFERASE INCREASED [None]
  - ALANINE AMINOTRANSFERASE INCREASED [None]
  - ASPHYXIA [None]
  - ASPIRATION [None]
  - BLOOD GLUCOSE DECREASED [None]
  - BLOOD LACTATE DEHYDROGENASE INCREASED [None]
  - BLOOD UREA INCREASED [None]
  - VOMITING [None]
  - REGURGITATION [None]
  - CARDIAC ARREST [None]
  - LOSS OF CONSCIOUSNESS [None]
  - BLOOD POTASSIUM INCREASED [None]
